FAERS Safety Report 8844501 (Version 3)
Quarter: 2013Q1

REPORT INFORMATION
  Report Type: Spontaneous
  Country: JP (occurrence: None)
  Receive Date: 20121012
  Receipt Date: 20121231
  Transmission Date: 20140127
  Serious: Yes (Hospitalization)
  Sender: FDA-Public Use
  Company Number: ABR_00660_2012

PATIENT
  Age: 58 Year
  Sex: Female
  Weight: 52 kg

DRUGS (11)
  1. ERYTHROMYCIN STEARATE [Suspect]
     Indication: PRODUCT USED FOR UNKNOWN INDICATION
     Route: 048
  2. AMINOPHYLLINE [Suspect]
     Indication: PRODUCT USED FOR UNKNOWN INDICATION
     Dosage: 125 MG OVER 15 MINUTES (125 MG), FOR UNKNOWN INTRAVENOUS DRIP
     Route: 041
  3. BEROTEC [Concomitant]
  4. AMBROXOL [Concomitant]
  5. FUDOSTEINE [Concomitant]
  6. BENPROPERINE [Concomitant]
  7. PRANLUKAST [Concomitant]
  8. NIZATIDINE [Concomitant]
  9. MARZULENE S [Concomitant]
  10. AMLODIPINE [Concomitant]
  11. ADOAIR [Concomitant]

REACTIONS (2)
  - Dyspnoea [None]
  - Drug interaction [None]
